FAERS Safety Report 12828375 (Version 2)
Quarter: 2016Q4

REPORT INFORMATION
  Report Type: Report from Study
  Country: IR (occurrence: IR)
  Receive Date: 20161007
  Receipt Date: 20161027
  Transmission Date: 20170207
  Serious: Yes (Other)
  Sender: FDA-Public Use
  Company Number: PHHY2016IR138433

PATIENT
  Sex: Female

DRUGS (1)
  1. GILENYA [Suspect]
     Active Substance: FINGOLIMOD HYDROCHLORIDE
     Indication: MULTIPLE SCLEROSIS
     Dosage: UNK
     Route: 048
     Dates: start: 20150705

REACTIONS (7)
  - Loss of consciousness [Unknown]
  - Muscle spasms [Unknown]
  - Dyskinesia [Unknown]
  - Simple partial seizures [Unknown]
  - Muscle rigidity [Unknown]
  - Generalised tonic-clonic seizure [Unknown]
  - Asthenia [Unknown]
